FAERS Safety Report 6313250-4 (Version None)
Quarter: 2009Q3

REPORT INFORMATION
  Report Type: 
  Country: None (occurrence: None)
  Receive Date: 20090814
  Receipt Date: 20090812
  Transmission Date: 20100115
  Serious: Yes (Hospitalization)
  Sender: FDA-Public Use
  Company Number: 2009SP019453

PATIENT
  Age: 58 Year
  Sex: Male

DRUGS (2)
  1. BETAMATHASONE DIPROPIONATE [Suspect]
     Indication: ECZEMA
     Dates: start: 20090424, end: 20090426
  2. KETOPROFEN [Suspect]
     Indication: ARTHRALGIA
     Dates: start: 20090401, end: 20090426

REACTIONS (4)
  - CONDITION AGGRAVATED [None]
  - ECZEMA [None]
  - PHOTOSENSITIVITY REACTION [None]
  - RASH MACULO-PAPULAR [None]
